FAERS Safety Report 8232557-7 (Version None)
Quarter: 2012Q1

REPORT INFORMATION
  Report Type: 
  Country: None (occurrence: None)
  Receive Date: 20120323
  Receipt Date: 20120316
  Transmission Date: 20120608
  Serious: Yes (Other)
  Sender: FDA-Public Use
  Company Number: PHHY2012IN023497

PATIENT
  Sex: Male

DRUGS (4)
  1. STEROIDS NOS [Concomitant]
     Indication: IMMUNOSUPPRESSION
  2. MYCOPHENOLATE MOFETIL [Concomitant]
     Indication: IMMUNOSUPPRESSION
  3. AZATHIOPRINE [Concomitant]
  4. TACROLIMUS [Suspect]
     Indication: IMMUNOSUPPRESSION

REACTIONS (3)
  - APLASIA PURE RED CELL [None]
  - IRON OVERLOAD [None]
  - ANAEMIA [None]
